FAERS Safety Report 18688787 (Version 4)
Quarter: 2021Q2

REPORT INFORMATION
  Report Type: Report from Study
  Country: IT (occurrence: IT)
  Receive Date: 20201231
  Receipt Date: 20210412
  Transmission Date: 20210717
  Serious: Yes (Hospitalization)
  Sender: FDA-Public Use
  Company Number: IT-GILEAD-2020-0511153

PATIENT
  Sex: Male

DRUGS (5)
  1. ALLOPURINOLO [Concomitant]
     Active Substance: ALLOPURINOL
     Indication: BLOOD URIC ACID ABNORMAL
     Route: 048
     Dates: start: 2012
  2. LANSOPRAZOLO [Concomitant]
     Active Substance: LANSOPRAZOLE
     Indication: GASTRITIS PROPHYLAXIS
     Route: 048
     Dates: start: 2012
  3. IDELALISIB [Suspect]
     Active Substance: IDELALISIB
     Indication: FOLLICULAR LYMPHOMA
     Dosage: 150 MG
     Route: 048
     Dates: start: 20161116, end: 20170228
  4. IDELALISIB [Suspect]
     Active Substance: IDELALISIB
     Dosage: 100 MG, BID
     Route: 048
     Dates: start: 20170315, end: 20180407
  5. IDELALISIB [Suspect]
     Active Substance: IDELALISIB
     Dosage: 100 MG
     Route: 048
     Dates: start: 20180501, end: 20190718

REACTIONS (1)
  - Dermatitis psoriasiform [Recovered/Resolved with Sequelae]

NARRATIVE: CASE EVENT DATE: 20190718
